FAERS Safety Report 16807881 (Version 2)
Quarter: 2019Q3

REPORT INFORMATION
  Report Type: Spontaneous
  Country: JP (occurrence: JP)
  Receive Date: 20190915
  Receipt Date: 20190925
  Transmission Date: 20191005
  Serious: Yes (Other)
  Sender: FDA-Public Use
  Company Number: JP-BRISTOL-MYERS SQUIBB COMPANY-BMS-2017-037657

PATIENT
  Age: 74 Year
  Sex: Female

DRUGS (1)
  1. OPDIVO [Suspect]
     Active Substance: NIVOLUMAB
     Indication: NON-SMALL CELL LUNG CANCER RECURRENT
     Dosage: 240 MILLIGRAM, Q2WK
     Route: 041
     Dates: start: 20170110, end: 201812

REACTIONS (5)
  - Tachycardia [Recovered/Resolved]
  - Malignant neoplasm progression [Not Recovered/Not Resolved]
  - Asthma [Recovering/Resolving]
  - Urticaria [Recovered/Resolved]
  - Amyloidosis [Recovering/Resolving]

NARRATIVE: CASE EVENT DATE: 2017
